FAERS Safety Report 6907403-1 (Version None)
Quarter: 2010Q3

REPORT INFORMATION
  Report Type: 
  Country: None (occurrence: None)
  Receive Date: 20100805
  Receipt Date: 20100803
  Transmission Date: 20110219
  Serious: Yes (Hospitalization, Other)
  Sender: FDA-Public Use
  Company Number: US-ASTRAZENECA-2007UW12863

PATIENT
  Age: 551 Month
  Sex: Male
  Weight: 131.5 kg

DRUGS (10)
  1. SEROQUEL [Suspect]
     Indication: ANXIETY
     Route: 048
     Dates: start: 20040101, end: 20050601
  2. SEROQUEL [Suspect]
     Indication: DEPRESSION
     Route: 048
     Dates: start: 20040101, end: 20050601
  3. COUMADIN [Concomitant]
     Indication: CEREBROVASCULAR ACCIDENT
     Dosage: 5-7.5 MG DAILY
     Dates: start: 20020920
  4. GLYBURIDE [Concomitant]
     Dosage: 10-20 MG DAILY
     Dates: start: 20050319
  5. ZOCOR [Concomitant]
     Indication: HYPERLIPIDAEMIA
     Dosage: 10-40 MG
     Dates: start: 20031224
  6. TOPROL-XL [Concomitant]
     Indication: HYPERTENSION
     Dosage: 50-100 MG DAILY
     Dates: start: 20020920
  7. HYDROCHLOROTHIAZIDE [Concomitant]
     Dates: start: 20020920
  8. VIAGRA [Concomitant]
     Indication: ERECTILE DYSFUNCTION
     Dosage: 50 MG AS REQUIRED
     Dates: start: 20020920
  9. HYZAAR [Concomitant]
     Dosage: 50/12.5 MG
     Dates: start: 20031224
  10. LISINOPRIL [Concomitant]
     Dates: start: 20020920

REACTIONS (7)
  - DIABETES MELLITUS [None]
  - DIABETES MELLITUS INADEQUATE CONTROL [None]
  - DIABETIC COMA [None]
  - DIABETIC COMPLICATION [None]
  - MIXED HYPERLIPIDAEMIA [None]
  - OBESITY [None]
  - TYPE 1 DIABETES MELLITUS [None]
